FAERS Safety Report 7220975-5 (Version None)
Quarter: 2011Q1

REPORT INFORMATION
  Report Type: 
  Country: None (occurrence: None)
  Receive Date: 20110112
  Receipt Date: 20110105
  Transmission Date: 20110831
  Serious: Yes (Other)
  Sender: FDA-Public Use
  Company Number: PHFR2011GB00544

PATIENT
  Sex: Male
  Weight: 76 kg

DRUGS (10)
  1. EXELON [Suspect]
     Dosage: 9.5 MG, UNK
     Route: 062
     Dates: start: 20101128, end: 20101207
  2. TAMSULOSIN [Concomitant]
     Dosage: 40 UG, UNK
     Route: 048
  3. LEVEMIR [Concomitant]
     Dosage: 10 U, UNK
     Route: 058
  4. DIGOXIN [Concomitant]
     Dosage: 125 UG, UNK
     Route: 048
  5. GLIPIZIDE [Concomitant]
     Dosage: 20 MG, UNK
     Route: 048
  6. WARFARIN [Concomitant]
     Dosage: 3 MG, UNK
     Route: 048
  7. METFORMIN [Concomitant]
     Dosage: 500 MG, BID
     Route: 048
  8. RAMIPRIL [Concomitant]
     Dosage: 10 MG, UNK
     Route: 048
  9. EXELON [Suspect]
     Dosage: 4.6 MG, UNK
     Route: 062
     Dates: start: 20101030, end: 20101127
  10. EXELON [Suspect]
     Dosage: 4.6 MG, UNK
     Route: 062

REACTIONS (3)
  - APPLICATION SITE PAIN [None]
  - APPLICATION SITE DISCOMFORT [None]
  - APPLICATION SITE PRURITUS [None]
